FAERS Safety Report 8389888-X (Version None)
Quarter: 2012Q2

REPORT INFORMATION
  Report Type: 
  Country: None (occurrence: None)
  Receive Date: 20120529
  Receipt Date: 20120515
  Transmission Date: 20120825
  Serious: Yes (Hospitalization)
  Sender: FDA-Public Use
  Company Number: AU-JNJFOC-20120312831

PATIENT
  Sex: Female
  Weight: 48 kg

DRUGS (6)
  1. BROMOCRIPTINE MESYLATE [Suspect]
     Route: 065
  2. INVEGA SUSTENNA [Suspect]
     Dosage: DAY 8
     Route: 030
  3. UNKNOWN MEDICATION [Concomitant]
     Indication: PRODUCT USED FOR UNKNOWN INDICATION
     Route: 065
  4. BROMOCRIPTINE MESYLATE [Suspect]
     Indication: PRODUCT USED FOR UNKNOWN INDICATION
     Route: 065
  5. INVEGA SUSTENNA [Suspect]
     Dosage: DAY 36, MAINTENANCE DOSE
     Route: 030
  6. INVEGA SUSTENNA [Suspect]
     Indication: PSYCHOTIC DISORDER
     Dosage: DAY 1
     Route: 030

REACTIONS (3)
  - EXTRAPYRAMIDAL DISORDER [None]
  - WEIGHT DECREASED [None]
  - NEUROLEPTIC MALIGNANT SYNDROME [None]
